FAERS Safety Report 9985628 (Version 1)
Quarter: 2014Q1

REPORT INFORMATION
  Report Type: Spontaneous
  Country: ES (occurrence: ES)
  Receive Date: 20140307
  Receipt Date: 20140307
  Transmission Date: 20141002
  Serious: Yes (Other)
  Sender: FDA-Public Use
  Company Number: ES-UCBSA-113660

PATIENT
  Age: 32 Year
  Sex: Female

DRUGS (1)
  1. KEPPRA [Suspect]
     Dosage: 1500 MG DAILY
     Route: 048
     Dates: start: 200910

REACTIONS (4)
  - Premature delivery [Recovered/Resolved]
  - Twin pregnancy [Recovered/Resolved]
  - Breast feeding [Unknown]
  - Pregnancy [Recovered/Resolved]
